FAERS Safety Report 4302218-5 (Version None)
Quarter: 2004Q1

REPORT INFORMATION
  Report Type: 
  Country: None (occurrence: None)
  Receive Date: 20040220
  Receipt Date: 20040209
  Transmission Date: 20041129
  Serious: Yes (Other)
  Sender: FDA-Public Use
  Company Number: 2004199038DE

PATIENT
  Age: 9 Year
  Sex: Female

DRUGS (8)
  1. ETOPOSIDE [Suspect]
     Indication: EWING'S SARCOMA
     Dosage: CYCLIC, IV
     Route: 042
  2. ADRIAMYCIN RDF [Suspect]
     Indication: EWING'S SARCOMA
     Dosage: CYCLIC, IV
     Route: 042
  3. IFX POWDER (IFOSFAMIDE) POWDER,  STERILE [Suspect]
     Indication: EWING'S SARCOMA
     Dosage: IV
     Route: 042
  4. VINCRISTINE [Suspect]
     Indication: EWING'S SARCOMA
     Dosage: CYCLIC, IV
     Route: 042
  5. DACTINOMYCIN [Suspect]
     Indication: EWING'S SARCOMA
     Dosage: CYCLIC, IV
     Route: 042
  6. G-CSF (GRANULOCYTE COLONY STIMULATING FACTOR) [Concomitant]
  7. MELPHALAN [Concomitant]
  8. ETOPOSIDE [Concomitant]

REACTIONS (13)
  - ALOPECIA [None]
  - BLOOD ACID PHOSPHATASE ABNORMAL [None]
  - DISEASE RECURRENCE [None]
  - DRUG TOXICITY [None]
  - EPIDERMOLYSIS [None]
  - INFECTION [None]
  - LUNG DISORDER [None]
  - METASTASES TO BONE [None]
  - METASTASIS [None]
  - MUCOSAL INFLAMMATION [None]
  - PNEUMOTHORAX [None]
  - RENAL TUBULAR DISORDER [None]
  - WHITE BLOOD CELL COUNT DECREASED [None]
